FAERS Safety Report 9157452 (Version 1)
Quarter: 2013Q1

REPORT INFORMATION
  Report Type: Spontaneous
  Country: US (occurrence: None)
  Receive Date: 20130308
  Receipt Date: 20130308
  Transmission Date: 20140127
  Serious: Yes (Death)
  Sender: FDA-Public Use
  Company Number: 2013-063

PATIENT
  Age: 55 Year
  Sex: Male

DRUGS (1)
  1. FAZACLO [Suspect]
     Dosage: 100-400 MG, QD, ORAL
     Route: 048
     Dates: start: 20121008, end: 20130106

REACTIONS (1)
  - Death [None]
